FAERS Safety Report 24993336 (Version 1)
Quarter: 2025Q1

REPORT INFORMATION
  Report Type: Spontaneous
  Country: TR (occurrence: TR)
  Receive Date: 20250221
  Receipt Date: 20250221
  Transmission Date: 20250408
  Serious: Yes (Hospitalization, Other)
  Sender: The J.Molner Company
  Company Number: TR-THE J. MOLNER COMPANY-202502000016

PATIENT

DRUGS (3)
  1. CIPROFLOXACIN [Suspect]
     Active Substance: CIPROFLOXACIN
     Indication: Urinary tract infection
     Route: 065
  2. LITHIUM [Concomitant]
     Active Substance: LITHIUM
  3. LITHIUM [Concomitant]
     Active Substance: LITHIUM

REACTIONS (2)
  - Delirium [Recovered/Resolved]
  - Mania [Recovered/Resolved]
